FAERS Safety Report 18335751 (Version 6)
Quarter: 2021Q2

REPORT INFORMATION
  Report Type: Spontaneous
  Country: US (occurrence: US)
  Receive Date: 20201001
  Receipt Date: 20210428
  Transmission Date: 20210717
  Serious: Yes (Other)
  Sender: FDA-Public Use
  Company Number: US-BAXTER-2020BAX019740

PATIENT
  Age: 68 Year
  Sex: Male

DRUGS (1)
  1. RECOTHROM [Suspect]
     Active Substance: THROMBIN ALFA
     Indication: VASCULAR GRAFT
     Dosage: 5000 IU
     Route: 042
     Dates: start: 20200615, end: 20200615

REACTIONS (4)
  - Wrong product administered [Recovered/Resolved]
  - Incorrect route of product administration [Recovered/Resolved]
  - Product dispensing error [Recovered/Resolved]
  - Thrombosis [Recovered/Resolved]

NARRATIVE: CASE EVENT DATE: 20200615
